FAERS Safety Report 9183901 (Version 2)
Quarter: 2013Q4

REPORT INFORMATION
  Report Type: Spontaneous
  Country: US (occurrence: US)
  Receive Date: 20121030
  Receipt Date: 20131101
  Transmission Date: 20140711
  Serious: No
  Sender: FDA-Public Use
  Company Number: US-009507513-1210USA011780

PATIENT
  Sex: Male

DRUGS (4)
  1. PEGINTRON [Suspect]
     Indication: CHRONIC HEPATITIS C
     Dosage: 150 MICROGRAMS WEEKLY
     Route: 058
  2. TELAPREVIR [Concomitant]
  3. PROCRIT [Concomitant]
  4. RIBASPHERE [Concomitant]

REACTIONS (1)
  - Drug ineffective [Unknown]
